FAERS Safety Report 5604088-1 (Version None)
Quarter: 2008Q1

REPORT INFORMATION
  Report Type: 
  Country: None (occurrence: None)
  Receive Date: 20080128
  Receipt Date: 20080117
  Transmission Date: 20080703
  Serious: Yes (Hospitalization)
  Sender: FDA-Public Use
  Company Number: FR-WYE-H02062208

PATIENT
  Sex: Male

DRUGS (10)
  1. AVLOCARDYL [Suspect]
     Route: 048
     Dates: end: 20071123
  2. LODALES [Concomitant]
     Dosage: DOSE UNKNOWN
     Route: 048
  3. COZAAR [Concomitant]
     Dosage: DOSE UNKNOWN
     Route: 048
  4. POTASSIUM CHLORIDE [Concomitant]
     Dosage: DOSE UNKNOWN
     Route: 048
  5. INDAPAMIDE [Concomitant]
     Dosage: DOSE UNKNOWN
     Route: 048
  6. PLAVIX [Concomitant]
     Dosage: DOSE UNKNOWN
     Route: 048
  7. PRAXILENE [Concomitant]
     Dosage: DOSE UNKNOWN
     Route: 048
  8. EXELON [Suspect]
     Route: 048
     Dates: start: 20070601, end: 20070801
  9. EXELON [Suspect]
     Route: 048
     Dates: start: 20070801, end: 20071123
  10. DIAMICRON [Concomitant]
     Route: 048

REACTIONS (2)
  - SINUS ARREST [None]
  - SYNCOPE [None]
